FAERS Safety Report 5216106-3 (Version None)
Quarter: 2007Q1

REPORT INFORMATION
  Report Type: 
  Country: None (occurrence: None)
  Receive Date: 20061122
  Receipt Date: 20060111
  Transmission Date: 20070707
  Serious: Yes (Disabling, Other)
  Sender: FDA-Public Use
  Company Number: 2006006750

PATIENT
  Age: 74 Year
  Sex: Female
  Weight: 90.7194 kg

DRUGS (9)
  1. LIPITOR [Suspect]
     Indication: BLOOD CHOLESTEROL ABNORMAL
     Dates: start: 20051201, end: 20060105
  2. WARFARIN SODIUM [Concomitant]
  3. AVAPRO [Concomitant]
  4. LASIX [Concomitant]
  5. VERAPAMIL [Concomitant]
  6. DYRENIUM (TRIAMTERENE) [Concomitant]
  7. PULMICORT [Concomitant]
  8. MICRO-K (POTASSIUM CHLORIDE) [Concomitant]
  9. ALL OTHER THERAPEUTIC PRODUCTS (ALL OTHER THERAPEUTIC PRODUCTS) [Concomitant]

REACTIONS (3)
  - BURSITIS [None]
  - MUSCULAR WEAKNESS [None]
  - MYALGIA [None]
